FAERS Safety Report 10888160 (Version 1)
Quarter: 2015Q1

REPORT INFORMATION
  Report Type: Spontaneous
  Country: CH (occurrence: CH)
  Receive Date: 20150304
  Receipt Date: 20150304
  Transmission Date: 20150721
  Serious: Yes (Hospitalization, Other)
  Sender: FDA-Public Use
  Company Number: CH-ASTRAZENECA-2015SE18416

PATIENT
  Age: 0 Day
  Weight: 2.3 kg

DRUGS (6)
  1. CANSARTAN-MEPHA [Suspect]
     Active Substance: CANDESARTAN CILEXETIL
     Route: 064
     Dates: start: 2013, end: 2014
  2. SEQUASE [Suspect]
     Active Substance: QUETIAPINE FUMARATE
     Route: 064
  3. CYMBALTA [Suspect]
     Active Substance: DULOXETINE HYDROCHLORIDE
     Route: 064
     Dates: start: 2013
  4. ATENOLOL. [Suspect]
     Active Substance: ATENOLOL
     Route: 064
     Dates: start: 2013, end: 2014
  5. SEQUASE [Suspect]
     Active Substance: QUETIAPINE FUMARATE
     Route: 064
     Dates: start: 2013
  6. ADALAT [Suspect]
     Active Substance: NIFEDIPINE
     Route: 064
     Dates: start: 2014

REACTIONS (2)
  - Premature baby [Recovered/Resolved]
  - Foetal exposure during pregnancy [None]

NARRATIVE: CASE EVENT DATE: 20140905
